FAERS Safety Report 23204668 (Version 1)
Quarter: 2023Q4

REPORT INFORMATION
  Report Type: Spontaneous
  Country: US (occurrence: US)
  Receive Date: 20231120
  Receipt Date: 20231120
  Transmission Date: 20240110
  Serious: Yes (Other)
  Sender: FDA-Public Use
  Company Number: US-OYSTER POINT PHARMA, INC-US-OYS-23-001543

PATIENT

DRUGS (1)
  1. TYRVAYA [Suspect]
     Active Substance: VARENICLINE TARTRATE
     Indication: Product used for unknown indication
     Dosage: 1 DOSAGE FORM, BID
     Route: 045
     Dates: start: 20231103, end: 20231104

REACTIONS (6)
  - Upper airway obstruction [Unknown]
  - Pharyngeal swelling [Unknown]
  - Administration site irritation [Unknown]
  - Oropharyngeal pain [Not Recovered/Not Resolved]
  - Nasal discomfort [Not Recovered/Not Resolved]
  - Sneezing [Unknown]

NARRATIVE: CASE EVENT DATE: 20231103
